FAERS Safety Report 4779731-X (Version None)
Quarter: 2005Q3

REPORT INFORMATION
  Report Type: 
  Country: None (occurrence: None)
  Receive Date: 20050914
  Receipt Date: 20050207
  Transmission Date: 20060218
  Serious: Yes (Hospitalization)
  Sender: FDA-Public Use
  Company Number: 163-20785-03030184

PATIENT
  Age: 58 Year
  Sex: Female

DRUGS (3)
  1. THALOMID [Suspect]
     Indication: MYELODYSPLASTIC SYNDROME
     Dosage: 100 MG, QHS, ORAL
     Route: 048
     Dates: start: 20020930, end: 20030102
  2. ARSENIC TRIOXIDE (ARSENIC TRIOXIDE) (INJECTION) [Suspect]
     Indication: MYELODYSPLASTIC SYNDROME
     Dosage: 0.25 MG/KG, QD X 5D/WK FOR 2 WKS, THEN 2 WKS OFF, INTRAVENOUS
     Route: 042
     Dates: start: 20020930, end: 20021231
  3. PYRIDOXINE (PYRIDOXINE) (UNKNOWN) [Concomitant]

REACTIONS (5)
  - BLEPHARITIS [None]
  - CONJUNCTIVITIS [None]
  - COUGH [None]
  - FEBRILE NEUTROPENIA [None]
  - HERPES SIMPLEX [None]
